FAERS Safety Report 9528078 (Version 2)
Quarter: 2013Q3

REPORT INFORMATION
  Report Type: Report from Study
  Country: CA (occurrence: CA)
  Receive Date: 20130917
  Receipt Date: 20130917
  Transmission Date: 20140515
  Serious: Yes (Hospitalization, Other)
  Sender: FDA-Public Use
  Company Number: CA-JNJFOC-20130306871

PATIENT
  Age: 26 Year
  Sex: Female
  Weight: 68 kg

DRUGS (4)
  1. REMICADE [Suspect]
     Indication: CROHN^S DISEASE
     Route: 042
     Dates: start: 20130306
  2. ELAVIL [Suspect]
     Indication: PRODUCT USED FOR UNKNOWN INDICATION
     Route: 065
  3. SYNTHROID [Suspect]
     Indication: PRODUCT USED FOR UNKNOWN INDICATION
     Route: 065
  4. IRON PILLS [Concomitant]
     Route: 065

REACTIONS (4)
  - Anaphylactoid syndrome of pregnancy [Unknown]
  - Postpartum haemorrhage [Unknown]
  - Exposure during pregnancy [Recovered/Resolved]
  - Bundle branch block left [Unknown]
